FAERS Safety Report 9188561 (Version 1)
Quarter: 2013Q1

REPORT INFORMATION
  Report Type: Spontaneous
  Country: US (occurrence: US)
  Receive Date: 20130325
  Receipt Date: 20130325
  Transmission Date: 20140127
  Serious: Yes (Hospitalization)
  Sender: FDA-Public Use
  Company Number: US-BAXTER-2013BAX008874

PATIENT
  Sex: Female

DRUGS (4)
  1. DIANEAL LOW CALCIUM [Suspect]
     Indication: PERITONEAL DIALYSIS
     Route: 033
     Dates: end: 20130203
  2. DIANEAL LOW CALCIUM [Suspect]
     Route: 033
     Dates: start: 20130224
  3. DIANEAL LOW CALCIUM [Suspect]
     Indication: PERITONEAL DIALYSIS
     Route: 033
     Dates: end: 20130203
  4. DIANEAL LOW CALCIUM [Suspect]
     Route: 033
     Dates: start: 20130224

REACTIONS (1)
  - Cholecystitis infective [Recovering/Resolving]
